FAERS Safety Report 6233127-2 (Version None)
Quarter: 2009Q2

REPORT INFORMATION
  Report Type: 
  Country: None (occurrence: None)
  Receive Date: 20090616
  Receipt Date: 20090616
  Transmission Date: 20091009
  Serious: Yes (Hospitalization)
  Sender: FDA-Public Use
  Company Number: None

PATIENT
  Sex: Male
  Weight: 87.0906 kg

DRUGS (2)
  1. SORAFENIB [Suspect]
     Indication: PANCREATIC CARCINOMA
     Dosage: 400 MG PO BID
     Route: 047
     Dates: start: 20090531, end: 20090612
  2. ERLOTINIB [Suspect]
     Indication: PANCREATIC CARCINOMA
     Dosage: 150 MG PO DAILY
     Route: 048
     Dates: start: 20090531, end: 20090612

REACTIONS (1)
  - BLOOD BILIRUBIN INCREASED [None]
